FAERS Safety Report 12196204 (Version 1)
Quarter: 2016Q1

REPORT INFORMATION
  Report Type: Spontaneous
  Country: FR (occurrence: FR)
  Receive Date: 20160321
  Receipt Date: 20160321
  Transmission Date: 20160526
  Serious: Yes (Hospitalization, Other)
  Sender: FDA-Public Use
  Company Number: FR-BRISTOL-MYERS SQUIBB COMPANY-BMS-2016-019009

PATIENT
  Sex: Male

DRUGS (1)
  1. HYDREA [Suspect]
     Active Substance: HYDROXYUREA
     Indication: POLYCYTHAEMIA VERA
     Dosage: 500 MG, UNK
     Route: 065

REACTIONS (4)
  - Haematocrit decreased [Unknown]
  - Haemoglobin decreased [Unknown]
  - Transfusion [Unknown]
  - Myelofibrosis [Unknown]
